FAERS Safety Report 7240867-5 (Version None)
Quarter: 2011Q1

REPORT INFORMATION
  Report Type: 
  Country: None (occurrence: None)
  Receive Date: 20110120
  Receipt Date: 20110120
  Transmission Date: 20110831
  Serious: Yes (Other)
  Sender: FDA-Public Use
  Company Number: None

PATIENT
  Age: 56 Year
  Sex: Female
  Weight: 60.782 kg

DRUGS (4)
  1. METOCLOPRAMIDE [Suspect]
     Indication: FATIGUE
     Dosage: 1 TAB PO (11-1 / 11-26 EST)
     Route: 048
  2. METOZOLV ODT [Suspect]
     Indication: GASTROOESOPHAGEAL REFLUX DISEASE
     Dosage: 1 TAB PO (11-1/11-26 EST)
     Route: 048
  3. METOZOLV ODT [Suspect]
     Indication: OESOPHAGEAL ULCER
     Dosage: 1 TAB PO (11-1/11-26 EST)
     Route: 048
  4. SAVELLA [Suspect]
     Indication: OROPHARYNGEAL PAIN
     Dosage: 1 TAB PO (11-1/11-26  EST)

REACTIONS (13)
  - PRURITUS [None]
  - OROPHARYNGEAL PAIN [None]
  - FLUID INTAKE REDUCED [None]
  - EATING DISORDER [None]
  - DIZZINESS [None]
  - ASTHENIA [None]
  - NAUSEA [None]
  - VOMITING [None]
  - OCULAR ICTERUS [None]
  - FEELING ABNORMAL [None]
  - FEELING HOT [None]
  - FREEZING PHENOMENON [None]
  - PRURITUS GENERALISED [None]
